FAERS Safety Report 19014079 (Version 5)
Quarter: 2021Q2

REPORT INFORMATION
  Report Type: Spontaneous
  Country: DE (occurrence: DE)
  Receive Date: 20210316
  Receipt Date: 20210426
  Transmission Date: 20210717
  Serious: Yes (Hospitalization, Other)
  Sender: FDA-Public Use
  Company Number: NVSC2021DE054419

PATIENT
  Age: 14 Year
  Sex: Male
  Weight: 80 kg

DRUGS (5)
  1. PREDNISOLONE. [Suspect]
     Active Substance: PREDNISOLONE
     Indication: PAIN IN EXTREMITY
     Dosage: 20 MG
     Route: 048
     Dates: start: 20190111, end: 20190111
  2. DICLOFENAC [Suspect]
     Active Substance: DICLOFENAC
     Indication: PAIN IN EXTREMITY
     Dosage: 375 MG, QD,  EVERY DAYS 5 SEPARATED DOSES
     Route: 048
     Dates: start: 20190111, end: 20190111
  3. PANTOPRAZOLE [Suspect]
     Active Substance: PANTOPRAZOLE
     Indication: PAIN IN EXTREMITY
     Dosage: 160 MG, QD,EVERY DAYS 4
     Route: 048
     Dates: start: 20190111, end: 20190111
  4. IBUPROFEN. [Suspect]
     Active Substance: IBUPROFEN
     Indication: PAIN IN EXTREMITY
     Dosage: 3600 MG, QD,  EVERY DAYS 6
     Route: 048
     Dates: start: 20190111, end: 20190111
  5. FERROSANOL [Suspect]
     Active Substance: FERROUS GLUCONATE
     Indication: PAIN IN EXTREMITY
     Dosage: 1000 MG, QD, EVERY DAYS 10
     Route: 048
     Dates: start: 20190111, end: 20190111

REACTIONS (8)
  - Abdominal pain upper [Recovering/Resolving]
  - Chest pain [Recovering/Resolving]
  - Vomiting [Recovering/Resolving]
  - Substance abuse [Recovering/Resolving]
  - Toxicity to various agents [Recovering/Resolving]
  - Overdose [Recovering/Resolving]
  - Metatarsalgia [Unknown]
  - Bradycardia [Unknown]

NARRATIVE: CASE EVENT DATE: 20190111
